FAERS Safety Report 14584073 (Version 1)
Quarter: 2018Q1

REPORT INFORMATION
  Report Type: Spontaneous
  Country: None (occurrence: US)
  Receive Date: 20180228
  Receipt Date: 20180228
  Transmission Date: 20180509
  Serious: No
  Sender: FDA-Public Use
  Company Number: US-MEDAC PHARMA, INC.-2042738

PATIENT
  Age: 60 Year
  Sex: Female
  Weight: 67.13 kg

DRUGS (6)
  1. RASUVO [Suspect]
     Active Substance: METHOTREXATE SODIUM
     Indication: RHEUMATOID ARTHRITIS
     Route: 058
  2. GABAPENTIN. [Concomitant]
     Active Substance: GABAPENTIN
  3. EVISTA [Concomitant]
     Active Substance: RALOXIFENE HYDROCHLORIDE
  4. TRAMADOL. [Concomitant]
     Active Substance: TRAMADOL
  5. FOLIC ACID. [Concomitant]
     Active Substance: FOLIC ACID
  6. ORENCIA [Concomitant]
     Active Substance: ABATACEPT

REACTIONS (3)
  - Drug dose omission [Unknown]
  - Sluggishness [Unknown]
  - Device issue [Unknown]

NARRATIVE: CASE EVENT DATE: 20180127
